FAERS Safety Report 9856904 (Version 1)
Quarter: 2014Q1

REPORT INFORMATION
  Report Type: Spontaneous
  Country: US (occurrence: US)
  Receive Date: 20140130
  Receipt Date: 20140130
  Transmission Date: 20141002
  Serious: No
  Sender: FDA-Public Use
  Company Number: US-009507513-1401USA013795

PATIENT
  Sex: 0

DRUGS (1)
  1. CLARITIN CHEWABLE TABLETS [Suspect]
     Indication: RHINORRHOEA
     Dosage: UNK, ONCE
     Route: 048
     Dates: start: 20140117

REACTIONS (1)
  - Drug ineffective [Unknown]
